FAERS Safety Report 6784106-8 (Version None)
Quarter: 2010Q2

REPORT INFORMATION
  Report Type: 
  Country: None (occurrence: None)
  Receive Date: 20100618
  Receipt Date: 20100610
  Transmission Date: 20101027
  Serious: Yes (Other)
  Sender: FDA-Public Use
  Company Number: FRVA20100008

PATIENT
  Age: 44 Year
  Sex: Female

DRUGS (3)
  1. FROVA [Suspect]
     Indication: MIGRAINE
     Dosage: ORAL
     Route: 048
  2. ALEVE [Suspect]
     Indication: MIGRAINE
     Dosage: PRN
  3. AMITRIPTYLINE (AMITRIPTYLINE) (20 MILLIGRAM) (AMITRIPTYLINE) [Concomitant]

REACTIONS (5)
  - ANGIOEDEMA [None]
  - OEDEMA PERIPHERAL [None]
  - PHARYNGEAL OEDEMA [None]
  - SWELLING FACE [None]
  - VASOCONSTRICTION [None]
